FAERS Safety Report 8861914 (Version 3)
Quarter: 2012Q4

REPORT INFORMATION
  Report Type: 
  Country: AU (occurrence: AU)
  Receive Date: 20121025
  Receipt Date: 20121214
  Transmission Date: 20130627
  Serious: Yes (Hospitalization, Other)
  Sender: FDA-Public Use
  Company Number: AU-009507513-1210AUS010702

PATIENT
  Age: 77 Year
  Sex: Female

DRUGS (1)
  1. FOSAMAX PLUS [Suspect]
     Indication: OSTEOPOROSIS
     Dosage: UNK
     Route: 048
     Dates: start: 1998, end: 20120215

REACTIONS (12)
  - Femur fracture [Unknown]
  - Open reduction of fracture [Unknown]
  - Drug hypersensitivity [Unknown]
  - Type 2 diabetes mellitus [Unknown]
  - Hypertension [Unknown]
  - Hypercholesterolaemia [Unknown]
  - Hypothyroidism [Unknown]
  - Drug hypersensitivity [Unknown]
  - Drug hypersensitivity [Unknown]
  - Hip arthroplasty [Unknown]
  - Drug hypersensitivity [Unknown]
  - Fall [Unknown]
